FAERS Safety Report 15927136 (Version 1)
Quarter: 2019Q1

REPORT INFORMATION
  Report Type: Spontaneous
  Country: CA (occurrence: CA)
  Receive Date: 20190206
  Receipt Date: 20190206
  Transmission Date: 20190417
  Serious: Yes (Hospitalization, Other)
  Sender: FDA-Public Use
  Company Number: CA-ELI_LILLY_AND_COMPANY-CA201902001045

PATIENT
  Age: 60 Year
  Sex: Male

DRUGS (2)
  1. HUMALOG [Suspect]
     Active Substance: INSULIN LISPRO
     Indication: PRODUCT USED FOR UNKNOWN INDICATION
     Dosage: 180 U, DAILY (120-180 U)
     Route: 065
     Dates: start: 2008
  2. HUMALOG [Suspect]
     Active Substance: INSULIN LISPRO
     Dosage: 600 UNK, UNK (AT ONCE)
     Route: 065

REACTIONS (4)
  - Insulin resistance [Unknown]
  - Diabetic complication [Unknown]
  - Injection site pain [Not Recovered/Not Resolved]
  - Palpitations [Recovering/Resolving]
